FAERS Safety Report 21031943 (Version 1)
Quarter: 2022Q3

REPORT INFORMATION
  Report Type: Report from Study
  Country: CA (occurrence: CA)
  Receive Date: 20220701
  Receipt Date: 20220701
  Transmission Date: 20221026
  Serious: Yes (Other)
  Sender: FDA-Public Use
  Company Number: CA-ABBVIE-22K-028-4388905-00

PATIENT
  Sex: Male

DRUGS (2)
  1. HUMIRA [Suspect]
     Active Substance: ADALIMUMAB
     Indication: Colitis ulcerative
     Route: 058
     Dates: start: 20220314, end: 2022
  2. HUMIRA [Suspect]
     Active Substance: ADALIMUMAB
     Route: 058
     Dates: start: 2022

REACTIONS (12)
  - Left ventricular dysfunction [Unknown]
  - Right ventricular dysfunction [Unknown]
  - Weight decreased [Recovering/Resolving]
  - Feeding disorder [Recovering/Resolving]
  - Constipation [Unknown]
  - Illness [Unknown]
  - Decreased appetite [Unknown]
  - Dyspepsia [Unknown]
  - Blood glucose increased [Unknown]
  - Diarrhoea [Unknown]
  - Abdominal discomfort [Unknown]
  - Therapeutic product effect decreased [Unknown]

NARRATIVE: CASE EVENT DATE: 20220101
